FAERS Safety Report 17518258 (Version 1)
Quarter: 2020Q1

REPORT INFORMATION
  Report Type: Spontaneous
  Country: DE (occurrence: DE)
  Receive Date: 20200309
  Receipt Date: 20200309
  Transmission Date: 20200409
  Serious: Yes (Other)
  Sender: FDA-Public Use
  Company Number: DE-MYLANLABS-2020M1024070

PATIENT
  Sex: Female

DRUGS (5)
  1. EPIRUBICIN [Suspect]
     Active Substance: EPIRUBICIN
     Indication: BREAST CANCER
     Dosage: UNK(6 CYCLES)
     Route: 065
     Dates: start: 201301, end: 201306
  2. CYCLOPHOSPHAMIDE. [Suspect]
     Active Substance: CYCLOPHOSPHAMIDE
     Indication: BREAST CANCER
     Dosage: UNK(6 CYCLES)
     Route: 065
     Dates: start: 201301, end: 201306
  3. EXEMESTANE. [Suspect]
     Active Substance: EXEMESTANE
     Indication: BREAST CANCER
     Dosage: 25 MG
     Route: 048
     Dates: start: 2015, end: 2017
  4. FLUOROURACIL. [Suspect]
     Active Substance: FLUOROURACIL
     Indication: BREAST CANCER
     Dosage: UNK (6 CYCLES)
     Route: 065
     Dates: start: 201301, end: 201306
  5. TAMOXIFEN [Suspect]
     Active Substance: TAMOXIFEN
     Indication: BREAST CANCER
     Dosage: 20 MG
     Route: 048
     Dates: start: 2013, end: 2015

REACTIONS (1)
  - Metastases to bone [Unknown]

NARRATIVE: CASE EVENT DATE: 2017
